FAERS Safety Report 10344702 (Version 1)
Quarter: 2014Q3

REPORT INFORMATION
  Report Type: Spontaneous
  Country: GB (occurrence: None)
  Receive Date: 20140724
  Receipt Date: 20140724
  Transmission Date: 20150326
  Serious: Yes (Hospitalization)
  Sender: FDA-Public Use
  Company Number: AUR-APL-2014-07841

PATIENT
  Age: 58 Year
  Sex: Female

DRUGS (7)
  1. ULTRAPROCT /00225401/ (CINCHOCAINE HYDROCHLORIDE, CLEMIZOLE UNDECYLENATE, FLUOCOROLONE ACETATE, FLUOCORTOLONE CAPROATE, HEXACHLOROPHENE) [Concomitant]
  2. NAPROXEN 500MG (NAPROXEN) UNKNOWN, 500MG [Suspect]
     Active Substance: NAPROXEN
     Indication: ARTHRITIS
     Route: 048
     Dates: start: 2012
  3. CODEINE (CODEINE) [Concomitant]
     Active Substance: CODEINE
  4. PROCTOFOAM HC (HYDROCORTISONE ACETATE, PRAMOCAINE HYDROCHLORIDE) [Concomitant]
  5. VALGANCICLOVIR (VALGANCICLOVIR) [Concomitant]
  6. PARACETAMOL (PARACETAMOL) [Concomitant]
     Active Substance: ACETAMINOPHEN
  7. OMEPRAZOLE (OMEPRAZOLE) [Concomitant]
     Active Substance: OMEPRAZOLE

REACTIONS (5)
  - Haematochezia [None]
  - Oral pain [None]
  - Dyspnoea exertional [None]
  - Gastrointestinal haemorrhage [None]
  - Microcytic anaemia [None]

NARRATIVE: CASE EVENT DATE: 2013
